FAERS Safety Report 19627307 (Version 4)
Quarter: 2022Q3

REPORT INFORMATION
  Report Type: Report from Study
  Country: DE (occurrence: DE)
  Receive Date: 20210729
  Receipt Date: 20220729
  Transmission Date: 20221027
  Serious: Yes (Other)
  Sender: FDA-Public Use
  Company Number: DE-BOEHRINGERINGELHEIM-2017-BI-067854

PATIENT
  Age: 78 Year
  Sex: Female
  Weight: 63 kg

DRUGS (40)
  1. AFATINIB [Suspect]
     Active Substance: AFATINIB
     Indication: Non-small cell lung cancer
     Route: 048
     Dates: start: 20171021, end: 20180119
  2. AFATINIB [Suspect]
     Active Substance: AFATINIB
     Route: 048
     Dates: start: 20180127, end: 20180924
  3. AFATINIB [Suspect]
     Active Substance: AFATINIB
     Route: 048
     Dates: start: 20180925, end: 20220621
  4. Metronidazol Gel [Concomitant]
     Indication: Product used for unknown indication
     Route: 062
     Dates: start: 20171115, end: 20171212
  5. INFECTOCORTISEPT [Concomitant]
     Indication: Product used for unknown indication
     Route: 062
     Dates: start: 20171128, end: 20180529
  6. INFECTOCORTISEPT [Concomitant]
     Route: 062
     Dates: start: 20180717, end: 20181204
  7. NYSTATIN [Concomitant]
     Active Substance: NYSTATIN
     Indication: Product used for unknown indication
     Dosage: FOA: SOFTPASTE
     Route: 062
     Dates: start: 20171128, end: 20180306
  8. NYSTATIN [Concomitant]
     Active Substance: NYSTATIN
     Dosage: SUSPENSION
     Route: 048
     Dates: start: 20171128, end: 20180109
  9. NYSTATIN [Concomitant]
     Active Substance: NYSTATIN
     Dosage: 1 DOSAGE FORM, UNIT UNKNOWN?FOA: SOFT PASTE??1 DOSAGE FORM, UNIT UNKNOWN 10-NOV-2020 23-JUN-2021 ORA
     Route: 061
     Dates: start: 20210406, end: 20210623
  10. NYSTATIN [Concomitant]
     Active Substance: NYSTATIN
     Dosage: 1 DOSAGE FORM, UNIT UNKNOWN
     Route: 048
     Dates: start: 20201110, end: 20210623
  11. CHINOSOL [Concomitant]
     Indication: Product used for unknown indication
     Route: 062
     Dates: start: 20171128, end: 20180918
  12. Fusicutan [Concomitant]
     Indication: Product used for unknown indication
     Route: 062
     Dates: start: 20171128, end: 20171212
  13. DOXYCYCLINE [Concomitant]
     Active Substance: DOXYCYCLINE
     Indication: Product used for unknown indication
     Route: 048
     Dates: start: 20171212, end: 20190122
  14. DOXYCYCLINE [Concomitant]
     Active Substance: DOXYCYCLINE
     Route: 048
     Dates: start: 20190319, end: 20190401
  15. DOXYCYCLINE [Concomitant]
     Active Substance: DOXYCYCLINE
     Route: 048
     Dates: start: 20190618, end: 20190702
  16. Prednicarbat creme [Concomitant]
     Indication: Product used for unknown indication
     Route: 062
     Dates: start: 20180424, end: 20180429
  17. Prednicarbat creme [Concomitant]
     Route: 062
     Dates: start: 20180430, end: 20180504
  18. Betamethasonvalerat [Concomitant]
     Indication: Product used for unknown indication
     Dosage: 1 DOSAGE FORM, UNIT UNKNOWN
     Route: 062
     Dates: start: 20180529, end: 20180918
  19. BETAGALEN [Concomitant]
     Indication: Product used for unknown indication
     Dosage: 1 DOSAGE FORM, UNIT UNKNOWN
     Route: 061
     Dates: start: 20200512, end: 20210623
  20. MOMETASONE FUROATE [Concomitant]
     Active Substance: MOMETASONE FUROATE
     Indication: Product used for unknown indication
     Dosage: 1 DOSAGE FORM, UNIT UNKNOWN
     Route: 061
     Dates: start: 20210623
  21. Bepanthensalbe/ Bepanthen Mundsp?lll?sung [Concomitant]
     Indication: Product used for unknown indication
     Route: 061
     Dates: start: 20201229, end: 20210623
  22. Bepanthensalbe/ Bepanthen Mundsp?lll?sung [Concomitant]
     Dosage: 1 DOSAGE FORM, UNIT UNKNOWN
     Route: 058
     Dates: start: 20180424, end: 20190319
  23. Bepanthensalbe/ Bepanthen Mundsp?lll?sung [Concomitant]
     Route: 048
     Dates: start: 20201229, end: 20210209
  24. Bepanthensalbe/ Bepanthen Mundsp?lll?sung [Concomitant]
     Route: 048
     Dates: start: 20201229, end: 20210623
  25. Carbamid Creme Widmer [Concomitant]
     Indication: Product used for unknown indication
     Dosage: 1 DOSAGE FORM, UNIT UNKNOWN
     Route: 062
     Dates: start: 20180109
  26. EXCIPIAL U LIPOLOTIO [Concomitant]
     Indication: Product used for unknown indication
     Route: 061
     Dates: start: 20180424
  27. curd soap [Concomitant]
     Indication: Product used for unknown indication
     Dosage: FOA: SOAP?2 DOSAGE FORMS, UNIT UNKNOWN
     Route: 062
     Dates: start: 20180918, end: 20190319
  28. BALNEUM HERMAL [Concomitant]
     Indication: Product used for unknown indication
     Dosage: 2 DOSAGE FORMS, UNIT UNKNOWN
     Route: 062
     Dates: start: 20180918
  29. Jodine [Concomitant]
     Indication: Product used for unknown indication
     Dosage: 2 DOSAGE FORMS, UNIT UNKNOWN
     Route: 062
     Dates: start: 20180918, end: 20190319
  30. Adapalen Gel [Concomitant]
     Indication: Product used for unknown indication
     Dosage: 2 DOSAGE FORMS, UNIT UNKNOWN
     Route: 061
     Dates: start: 20181204, end: 20190319
  31. Clobetasolproprinat [Concomitant]
     Indication: Product used for unknown indication
     Dosage: 1 DOSAGE FORM, UNIT UNKNOWN
     Route: 061
     Dates: start: 20190319, end: 20190401
  32. METROCREME [Concomitant]
     Indication: Product used for unknown indication
     Dosage: 2 DOSAGE FORMS, UNIT UNKNOWN
     Route: 058
     Dates: start: 20200121, end: 20200512
  33. Siliveo Nagellack [Concomitant]
     Indication: Product used for unknown indication
     Dosage: FOA: NAIL ENAMEL?1 DOSAGE FORM, UNIT UNKNOWN
     Route: 061
     Dates: start: 20200811
  34. Eucerin Acut Lipbalm [Concomitant]
     Indication: Product used for unknown indication
     Dosage: FOA: LIPBALM?1 DOSAGE FORM, UNIT UNKNOWN
     Route: 061
     Dates: start: 20210209
  35. Clobetasol L?sung [Concomitant]
     Indication: Product used for unknown indication
     Dosage: FOA: SOLUTION?2 DOSAGE FORMS, UNIT UNKNOWN
     Route: 061
     Dates: start: 20210209, end: 20210623
  36. Clobetasol L?sung [Concomitant]
     Dosage: 1 DOSAGE FORM, UNIT UNKNOWN
     Route: 061
     Dates: start: 20190828, end: 20200512
  37. Clobetasol L?sung [Concomitant]
     Dosage: 1 DOSAGE FORM, UNIT UNKNOWN
     Route: 062
     Dates: start: 20191126, end: 20200512
  38. Chlorhexidincreme 1% [Concomitant]
     Indication: Product used for unknown indication
     Dosage: 1 DOSAGE FORM, UNIT UNKNOWN
     Route: 061
     Dates: start: 20210623
  39. Predicarbat Galen [Concomitant]
     Indication: Product used for unknown indication
     Dosage: 1 DOSAGE FORM, UNIT UNKNOWN
     Route: 061
     Dates: start: 20210623
  40. CRESOL\UREA [Concomitant]
     Active Substance: CRESOL\UREA
     Indication: Product used for unknown indication
     Dosage: 2 DOSAGE FORMS, UNIT UNKNOWN
     Route: 062
     Dates: start: 20190319

REACTIONS (12)
  - Xerosis [Not Recovered/Not Resolved]
  - Angular cheilitis [Recovered/Resolved]
  - Dermatitis acneiform [Recovered/Resolved]
  - Mucosal inflammation [Recovered/Resolved]
  - Paronychia [Not Recovered/Not Resolved]
  - Alopecia [Recovered/Resolved]
  - Skin fissures [Not Recovered/Not Resolved]
  - Skin fissures [Recovered/Resolved]
  - Angular cheilitis [Recovered/Resolved]
  - Eczema [Recovered/Resolved]
  - Oral candidiasis [Recovered/Resolved]
  - Skin abrasion [Not Recovered/Not Resolved]

NARRATIVE: CASE EVENT DATE: 20171115
